FAERS Safety Report 16807226 (Version 1)
Quarter: 2019Q3

REPORT INFORMATION
  Report Type: Spontaneous
  Country: US (occurrence: US)
  Receive Date: 20190913
  Receipt Date: 20190913
  Transmission Date: 20191005
  Serious: No
  Sender: FDA-Public Use
  Company Number: US-3M-2018-US-020744

PATIENT
  Age: 70 Year
  Sex: Female

DRUGS (4)
  1. CHLORHEXIDINE GLUCONATE (NON-SPECIFIC) [Suspect]
     Active Substance: CHLORHEXIDINE GLUCONATE
     Indication: PRODUCT USED FOR UNKNOWN INDICATION
     Dosage: RINSES TWICE PER DAY
     Route: 048
     Dates: start: 20181203
  2. UNSPECIFIED MEDICATION FOR HIGH BLOOD PRESSURE [Concomitant]
  3. UNSPECIFIED MEDICATION FOR HIGH CHOLESTEROL [Concomitant]
  4. UNSPECIFIED MEDICATION FOR DIABETES [Concomitant]

REACTIONS (2)
  - Nausea [Unknown]
  - Vomiting [Unknown]

NARRATIVE: CASE EVENT DATE: 20181203
